FAERS Safety Report 23089931 (Version 6)
Quarter: 2024Q2

REPORT INFORMATION
  Report Type: Spontaneous
  Country: US (occurrence: US)
  Receive Date: 20231020
  Receipt Date: 20240416
  Transmission Date: 20240715
  Serious: No
  Sender: FDA-Public Use
  Company Number: US-PFIZER INC-202201399353

PATIENT
  Age: 77 Year
  Sex: Female
  Weight: 84.172 kg

DRUGS (4)
  1. BRAFTOVI [Suspect]
     Active Substance: ENCORAFENIB
     Indication: Rectal cancer stage III
     Dosage: 4 CAPSULE DAILY. TAKE WHOLE WITH OR WITHOUT FOOD
     Route: 048
     Dates: start: 20220606
  2. BRAFTOVI [Suspect]
     Active Substance: ENCORAFENIB
     Dosage: 75MG TAKE 3 CAPSULES DAILY
     Route: 048
  3. BRAFTOVI [Suspect]
     Active Substance: ENCORAFENIB
     Dosage: 75MG TAKE 3 CAPSULES BY MOUTH DAILY
  4. PANITUMUMAB [Concomitant]
     Active Substance: PANITUMUMAB
     Indication: Rectal cancer stage III
     Dosage: UNK
     Dates: start: 20220606

REACTIONS (5)
  - Off label use [Unknown]
  - Product prescribing error [Unknown]
  - Product use issue [Unknown]
  - Illness [Unknown]
  - Hypoacusis [Unknown]

NARRATIVE: CASE EVENT DATE: 20220606
